FAERS Safety Report 9051405 (Version 1)
Quarter: 2013Q1

REPORT INFORMATION
  Report Type: Spontaneous
  Country: US (occurrence: US)
  Receive Date: 20130206
  Receipt Date: 20130206
  Transmission Date: 20140127
  Serious: No
  Sender: FDA-Public Use
  Company Number: US-ALLERGAN-1205775US

PATIENT
  Age: 68 Year
  Sex: Female

DRUGS (3)
  1. RESTASIS [Suspect]
     Indication: DRY EYE
     Dosage: 2 GTT, BID
     Route: 047
  2. REFRESH OPTIVE SENSITIVE [Concomitant]
     Indication: DRY EYE
     Dosage: PRN
     Route: 047
  3. ALLREX [Concomitant]
     Indication: PRODUCT USED FOR UNKNOWN INDICATION
     Dosage: 1 GTT OU BID FOR 2 WEEKS THEN QOD
     Route: 047

REACTIONS (1)
  - Lacrimation increased [Recovered/Resolved]
